FAERS Safety Report 18630059 (Version 1)
Quarter: 2020Q4

REPORT INFORMATION
  Report Type: Spontaneous
  Country: US (occurrence: US)
  Receive Date: 20201217
  Receipt Date: 20201217
  Transmission Date: 20210114
  Serious: No
  Sender: FDA-Public Use
  Company Number: US-PFIZER INC-2020485097

PATIENT
  Age: 77 Year
  Sex: Male

DRUGS (21)
  1. PRAVASTATIN. [Concomitant]
     Active Substance: PRAVASTATIN
     Dosage: 40 MG, 1X/DAY (40MG TABLET IN THE EVENING)
  2. ROPINIROLE. [Concomitant]
     Active Substance: ROPINIROLE
     Dosage: 2 MG, 2X/DAY (1MG TABLET, TWO TABLETS IN THE MORNING AND TWO TABLETS IN THE EVENING)
  3. GLIPIZIDE. [Concomitant]
     Active Substance: GLIPIZIDE
     Dosage: 5 MG, 1X/DAY
  4. IRON [Concomitant]
     Active Substance: IRON
     Dosage: 325 MG, DAILY
  5. WARFARIN [Concomitant]
     Active Substance: WARFARIN
     Dosage: UNK
  6. DONEPEZIL. [Concomitant]
     Active Substance: DONEPEZIL
     Dosage: 10 MG, 1X/DAY
  7. NITROGLYCERIN. [Concomitant]
     Active Substance: NITROGLYCERIN
     Dosage: 0.4 MG, AS NEEDED
  8. SLOW-MAG [Concomitant]
     Active Substance: MAGNESIUM CHLORIDE
     Dosage: 64 MG, 2X/DAY (64MG TABLET IN THE MORNING AND 64MG TABLET IN THE EVENING)
  9. FINASTERIDE. [Concomitant]
     Active Substance: FINASTERIDE
     Dosage: 5 MG, 1X/DAY (IN THE EVENING)
  10. GABAPENTIN. [Concomitant]
     Active Substance: GABAPENTIN
     Dosage: 1500 MG, DAILY (THREE TABLETS IN THE MORNING AND TWO TABLETS IN THE EVENING)
  11. HYDRALAZINE [Concomitant]
     Active Substance: HYDRALAZINE HYDROCHLORIDE
     Dosage: 50 MG, 2X/DAY (25MG TABLET, TWO TABLETS IN THE MORNING AND TWO TABLETS IN THE EVENING)
  12. OXYCODONE [Concomitant]
     Active Substance: OXYCODONE
     Dosage: 3 DF, DAILY [10-325MG, THREE PER DAY]
  13. TORSEMIDE. [Concomitant]
     Active Substance: TORSEMIDE
     Dosage: 40 MG, 2X/DAY (TWO TABLETS IN THE MORNING AND TWO TABLETS IN THE EVENING)
  14. VYNDAMAX [Suspect]
     Active Substance: TAFAMIDIS
     Indication: AMYLOIDOSIS
     Dosage: 61 MG, 1X/DAY
     Route: 048
  15. CALCITRIOL. [Concomitant]
     Active Substance: CALCITRIOL
     Dosage: 0.5 MG (0.5MG THREE TIMES A WEEK ON MONDAY, WEDNESDAY, FRIDAY)
  16. VITAMIN D3 [Concomitant]
     Active Substance: CHOLECALCIFEROL
     Dosage: 1000 MG, DAILY
  17. FISH OIL [Concomitant]
     Active Substance: FISH OIL
     Dosage: 300 MG, 4X/DAY
  18. ZOLPIDEM [Concomitant]
     Active Substance: ZOLPIDEM TARTRATE
     Dosage: 5 MG, AS NEEDED
  19. ALFUZOSINE [ALFUZOSIN] [Concomitant]
     Active Substance: ALFUZOSIN HYDROCHLORIDE
     Dosage: 10 MG, 1X/DAY
  20. ALLOPURINOL. [Concomitant]
     Active Substance: ALLOPURINOL
     Dosage: 100 MG, 1X/DAY
  21. PANTOPRAZOLE [Concomitant]
     Active Substance: PANTOPRAZOLE
     Dosage: 40 MG, 2X/DAY (40MG IN THE MORNING AND 40MG IN THE EVENING)

REACTIONS (2)
  - Hypoacusis [Unknown]
  - Off label use [Unknown]
